FAERS Safety Report 16900309 (Version 2)
Quarter: 2019Q4

REPORT INFORMATION
  Report Type: Spontaneous
  Country: US (occurrence: US)
  Receive Date: 20191009
  Receipt Date: 20191016
  Transmission Date: 20200122
  Serious: No
  Sender: FDA-Public Use
  Company Number: US-009507513-1910USA006861

PATIENT
  Sex: Male

DRUGS (2)
  1. TEMODAR [Suspect]
     Active Substance: TEMOZOLOMIDE
     Indication: PRODUCT USED FOR UNKNOWN INDICATION
     Dosage: 1 CAPSULE  BY MOUTH ON DAYS 1-5 OF A 28 DAY CYCLE WITH OR WITHOUT FOOD, FREQUENCY: OTHER
     Route: 048
     Dates: start: 201907
  2. TEMODAR [Suspect]
     Active Substance: TEMOZOLOMIDE
     Indication: PRODUCT USED FOR UNKNOWN INDICATION
     Dosage: 2 CAPSULES (40 MG) BY MOUTH ON DAYS 1-5 OF A 28 DAY CYCLE WITH OR WITHOUT FOOD, FREQUENCY: OTHER. (R
     Route: 048
     Dates: start: 201907

REACTIONS (2)
  - Nausea [Unknown]
  - Vomiting [Unknown]
